FAERS Safety Report 18293255 (Version 1)
Quarter: 2020Q3

REPORT INFORMATION
  Report Type: Spontaneous
  Country: FR (occurrence: FR)
  Receive Date: 20200921
  Receipt Date: 20200921
  Transmission Date: 20201103
  Serious: Yes (Other)
  Sender: FDA-Public Use
  Company Number: FR-009507513-2009FRA006871

PATIENT
  Age: 57 Year
  Sex: Male

DRUGS (2)
  1. DIPROSTENE [Suspect]
     Active Substance: BETAMETHASONE DIPROPIONATE\BETAMETHASONE SODIUM PHOSPHATE
     Indication: ARTHRALGIA
     Dosage: 1 DOSAGE FORM, ONCE (1 TOTAL)
     Route: 014
     Dates: start: 202003, end: 202003
  2. VISIPAQUE [Suspect]
     Active Substance: IODIXANOL
     Indication: ARTHROSCOPY
     Dosage: 1 DOSAGE FORM, ONCE (1 TOTAL)
     Route: 014
     Dates: start: 202003, end: 202003

REACTIONS (5)
  - Pruritus [Recovered/Resolved]
  - Anaphylactic reaction [Recovered/Resolved]
  - Dyspnoea [Recovered/Resolved]
  - Nausea [Recovered/Resolved]
  - Allergic reaction to excipient [Recovered/Resolved]

NARRATIVE: CASE EVENT DATE: 202003
